FAERS Safety Report 8525781-7 (Version None)
Quarter: 2012Q3

REPORT INFORMATION
  Report Type: 
  Country: None (occurrence: None)
  Receive Date: 20120720
  Receipt Date: 20120706
  Transmission Date: 20120928
  Serious: No
  Sender: FDA-Public Use
  Company Number: US-BAYER-2012-072009

PATIENT
  Age: 38 Year
  Sex: Female

DRUGS (1)
  1. AVELOX [Suspect]
     Indication: SINUSITIS
     Dosage: 1 DF, QD
     Route: 048
     Dates: start: 20120702, end: 20120702

REACTIONS (2)
  - NAUSEA [None]
  - PARAESTHESIA [None]
